FAERS Safety Report 9062511 (Version 2)
Quarter: 2013Q1

REPORT INFORMATION
  Report Type: Spontaneous
  Country: JP (occurrence: JP)
  Receive Date: 20130128
  Receipt Date: 20130225
  Transmission Date: 20140127
  Serious: No
  Sender: FDA-Public Use
  Company Number: JP-AMGEN-JPNSP2013005702

PATIENT
  Age: 85 Year
  Sex: Male

DRUGS (7)
  1. RANMARK [Suspect]
     Indication: PROSTATE CANCER
     Dosage: 120 MG, QD
     Route: 058
     Dates: start: 20121207
  2. RANMARK [Suspect]
     Route: 058
     Dates: start: 20121207, end: 20130104
  3. CASODEX [Concomitant]
     Indication: PROSTATE CANCER
     Dosage: 80 MG, QD
     Route: 048
     Dates: start: 20121201
  4. CASODEX [Concomitant]
     Route: 048
     Dates: start: 20121201
  5. HARNAL [Concomitant]
     Indication: PROSTATE CANCER
     Route: 048
     Dates: start: 20121201
  6. ONEALFA [Concomitant]
     Indication: PROSTATE CANCER
     Route: 048
     Dates: start: 20121207
  7. CALCIUM LACTATE [Concomitant]
     Indication: PROSTATE CANCER
     Route: 048
     Dates: start: 20121207

REACTIONS (1)
  - Hypocalcaemia [Not Recovered/Not Resolved]
